FAERS Safety Report 21532383 (Version 2)
Quarter: 2023Q4

REPORT INFORMATION
  Report Type: Report from Study
  Country: JP (occurrence: JP)
  Receive Date: 20221101
  Receipt Date: 20231020
  Transmission Date: 20240110
  Serious: Yes (Hospitalization, Other)
  Sender: FDA-Public Use
  Company Number: JP-ASTELLAS-2022JP002957

PATIENT
  Age: 61 Year
  Sex: Male

DRUGS (16)
  1. ENFORTUMAB VEDOTIN [Suspect]
     Active Substance: ENFORTUMAB VEDOTIN
     Indication: Transitional cell carcinoma
     Route: 041
     Dates: start: 20220208, end: 20220317
  2. ENFORTUMAB VEDOTIN [Suspect]
     Active Substance: ENFORTUMAB VEDOTIN
     Route: 041
     Dates: start: 20220412, end: 20220419
  3. ENFORTUMAB VEDOTIN [Suspect]
     Active Substance: ENFORTUMAB VEDOTIN
     Route: 041
     Dates: start: 20220512, end: 20220519
  4. ENFORTUMAB VEDOTIN [Suspect]
     Active Substance: ENFORTUMAB VEDOTIN
     Route: 041
     Dates: start: 20220609, end: 20220617
  5. ENFORTUMAB VEDOTIN [Suspect]
     Active Substance: ENFORTUMAB VEDOTIN
     Route: 041
     Dates: start: 20220707, end: 20220714
  6. ENFORTUMAB VEDOTIN [Suspect]
     Active Substance: ENFORTUMAB VEDOTIN
     Route: 041
     Dates: start: 20220805, end: 20220812
  7. ENFORTUMAB VEDOTIN [Suspect]
     Active Substance: ENFORTUMAB VEDOTIN
     Route: 041
     Dates: start: 20220902, end: 20220909
  8. ENFORTUMAB VEDOTIN [Suspect]
     Active Substance: ENFORTUMAB VEDOTIN
     Route: 041
     Dates: start: 20220930, end: 20221007
  9. HYALURONATE SODIUM [Concomitant]
     Active Substance: HYALURONATE SODIUM
     Indication: Dry eye
     Dosage: UNK UNK, UNKNOWN FREQ.
     Route: 047
  10. METHYLCOBALAMIN [Concomitant]
     Active Substance: METHYLCOBALAMIN
     Indication: Hypoaesthesia
     Dosage: UNK UNK, UNKNOWN FREQ.
     Route: 048
  11. LORAZEPAM [Concomitant]
     Active Substance: LORAZEPAM
     Indication: Abdominal discomfort
     Dosage: UNK UNK, UNKNOWN FREQ.
     Route: 065
     Dates: start: 202203
  12. POLAPREZINC [Concomitant]
     Active Substance: POLAPREZINC
     Indication: Taste disorder
     Dosage: UNK UNK, UNKNOWN FREQ.
     Route: 048
  13. Myser [Concomitant]
     Indication: Rash
     Dosage: UNK UNK, TWICE DAILY
     Route: 050
     Dates: start: 20220214, end: 20221018
  14. Myser [Concomitant]
     Indication: Pruritus
  15. FEXOFENADINE HYDROCHLORIDE [Concomitant]
     Active Substance: FEXOFENADINE HYDROCHLORIDE
     Indication: Rash
     Route: 048
     Dates: start: 20220219, end: 20221018
  16. FEXOFENADINE HYDROCHLORIDE [Concomitant]
     Active Substance: FEXOFENADINE HYDROCHLORIDE
     Indication: Pruritus

REACTIONS (7)
  - Malignant neoplasm progression [Not Recovered/Not Resolved]
  - Pruritus [Recovering/Resolving]
  - Rash [Recovering/Resolving]
  - Taste disorder [Not Recovered/Not Resolved]
  - Hypoaesthesia [Recovered/Resolved]
  - Abdominal discomfort [Recovered/Resolved]
  - Dry eye [Recovered/Resolved]

NARRATIVE: CASE EVENT DATE: 20220214
